FAERS Safety Report 21778285 (Version 1)
Quarter: 2022Q4

REPORT INFORMATION
  Report Type: Report from Study
  Country: US (occurrence: US)
  Receive Date: 20221226
  Receipt Date: 20221226
  Transmission Date: 20230113
  Serious: No
  Sender: FDA-Public Use
  Company Number: US-ABBVIE-4249962

PATIENT
  Sex: Male

DRUGS (1)
  1. IMBRUVICA [Suspect]
     Active Substance: IBRUTINIB
     Indication: Chronic lymphocytic leukaemia
     Dosage: THE ONSET OF THE EVENT OF  IMBRUVICA WAS NOT WORKING WELL ENOUGH AND NO SIGNIFICANT IMPROVEMENTS ...
     Route: 048
     Dates: start: 20220408

REACTIONS (2)
  - Full blood count abnormal [Unknown]
  - Therapeutic product effect incomplete [Unknown]
